APPROVED DRUG PRODUCT: FENOFIBRATE
Active Ingredient: FENOFIBRATE
Strength: 145MG
Dosage Form/Route: TABLET;ORAL
Application: A208476 | Product #002 | TE Code: AB
Applicant: BOSTAL LLC
Approved: Feb 10, 2021 | RLD: No | RS: No | Type: RX